FAERS Safety Report 5022915-6 (Version None)
Quarter: 2006Q2

REPORT INFORMATION
  Report Type: 
  Country: None (occurrence: None)
  Receive Date: 20060426
  Receipt Date: 20060113
  Transmission Date: 20061013
  Serious: Yes (Other)
  Sender: FDA-Public Use
  Company Number: 2006009543

PATIENT
  Age: 35 Year
  Sex: Male

DRUGS (4)
  1. LYRICA [Suspect]
     Indication: NEURALGIA
  2. OXYCONTIN [Concomitant]
  3. PERCOCET [Concomitant]
  4. LISINOPRIL [Concomitant]

REACTIONS (1)
  - DYSURIA [None]
